FAERS Safety Report 20611516 (Version 1)
Quarter: 2022Q1

REPORT INFORMATION
  Report Type: Spontaneous
  Country: US (occurrence: US)
  Receive Date: 20220318
  Receipt Date: 20220318
  Transmission Date: 20220424
  Serious: No
  Sender: FDA-Public Use
  Company Number: US-ELI_LILLY_AND_COMPANY-US202203008288

PATIENT
  Sex: Female

DRUGS (1)
  1. TALTZ [Suspect]
     Active Substance: IXEKIZUMAB
     Indication: Product used for unknown indication
     Dosage: UNK UNK, UNKNOWN
     Route: 065
     Dates: start: 201410

REACTIONS (8)
  - Fear [Unknown]
  - Feeling hot [Unknown]
  - Confusional state [Unknown]
  - Fatigue [Unknown]
  - Feeling abnormal [Unknown]
  - Feeling jittery [Unknown]
  - Malaise [Unknown]
  - Feeling jittery [Unknown]
